FAERS Safety Report 10869103 (Version 2)
Quarter: 2015Q2

REPORT INFORMATION
  Report Type: Report from Study
  Country: US (occurrence: US)
  Receive Date: 20150225
  Receipt Date: 20150423
  Transmission Date: 20150821
  Serious: Yes (Other)
  Sender: FDA-Public Use
  Company Number: US-GILEAD-2015-0138707

PATIENT
  Age: 79 Year
  Sex: Male

DRUGS (4)
  1. AMBRISENTAN [Suspect]
     Active Substance: AMBRISENTAN
     Indication: PULMONARY ARTERIAL HYPERTENSION
     Dosage: 10 MG, QD
     Route: 065
     Dates: start: 20131127
  2. ADEMPAS [Concomitant]
     Active Substance: RIOCIGUAT
  3. NEXIUM [Concomitant]
     Active Substance: ESOMEPRAZOLE MAGNESIUM
  4. VENTAVIS [Concomitant]
     Active Substance: ILOPROST

REACTIONS (6)
  - Blood iron decreased [Unknown]
  - Hypotension [Unknown]
  - Malaise [Unknown]
  - Haemoglobin decreased [Unknown]
  - Polycythaemia [Unknown]
  - Large intestinal haemorrhage [Unknown]

NARRATIVE: CASE EVENT DATE: 2014
